FAERS Safety Report 6489633-9 (Version None)
Quarter: 2009Q4

REPORT INFORMATION
  Report Type: 
  Country: None (occurrence: None)
  Receive Date: 20091207
  Receipt Date: 20091123
  Transmission Date: 20100525
  Serious: Yes (Other)
  Sender: FDA-Public Use
  Company Number: 2009AC000362

PATIENT
  Age: 75 Year
  Sex: Female

DRUGS (28)
  1. DIGOXIN [Suspect]
     Dosage: 0.25 MG; PO
     Route: 048
  2. MECLIZINE [Concomitant]
  3. ALLOPURINOL [Concomitant]
  4. SYNTHROID [Concomitant]
  5. POTASSIUM CHLORIDE [Concomitant]
  6. NEURONTIN [Concomitant]
  7. QUININE [Concomitant]
  8. RANITIDINE [Concomitant]
  9. NAPROXEN [Concomitant]
  10. XENICAL [Concomitant]
  11. AMITRIPTYLINE [Concomitant]
  12. FUROSEMIDE [Concomitant]
  13. PREMARIN [Concomitant]
  14. LEVOTHYROXINE SODIUM [Concomitant]
  15. ALLOPURINOL [Concomitant]
  16. METOCLOPRAMIDE [Concomitant]
  17. RANITIDINE [Concomitant]
  18. FUROSEMIDE [Concomitant]
  19. GABAPENTIN [Concomitant]
  20. AMITRIPTYLINE [Concomitant]
  21. PLAVIX [Concomitant]
  22. CRESTOR [Concomitant]
  23. UTA [Concomitant]
  24. BENZONATATE [Concomitant]
  25. CEPHALEXIN [Concomitant]
  26. AURODEX OTIC DROPS [Concomitant]
  27. MELOXICAM [Concomitant]
  28. ASPIRIN [Concomitant]

REACTIONS (10)
  - ANXIETY [None]
  - ARTHRITIS [None]
  - BRONCHITIS [None]
  - COUGH [None]
  - ECONOMIC PROBLEM [None]
  - IMPAIRED WORK ABILITY [None]
  - MULTIPLE INJURIES [None]
  - PAIN [None]
  - UNEVALUABLE EVENT [None]
  - UPPER RESPIRATORY TRACT INFECTION [None]
